FAERS Safety Report 9538456 (Version 1)
Quarter: 2013Q3

REPORT INFORMATION
  Report Type: Spontaneous
  Country: US (occurrence: US)
  Receive Date: 20130920
  Receipt Date: 20130920
  Transmission Date: 20140515
  Serious: Yes (Hospitalization, Other)
  Sender: FDA-Public Use
  Company Number: US-UCBSA-098186

PATIENT
  Age: 35 Year
  Sex: Female

DRUGS (6)
  1. LEVETIRACETAM [Suspect]
     Indication: EPILEPSY
     Dosage: UNKNOWN DOSE
  2. LACOSAMIDE [Concomitant]
     Indication: EPILEPSY
     Dosage: UNKNOWN DOSE
  3. CLONAZEPAM [Concomitant]
     Indication: EPILEPSY
     Dosage: UNKNOWN DOSE
  4. ZONISAMIDE [Concomitant]
     Indication: EPILEPSY
     Dosage: UNKNOWN DOSE
  5. ZONISAMIDE [Concomitant]
     Indication: EPILEPSY
     Dosage: 200 MG/DAY
  6. PHENYTOIN [Concomitant]
     Indication: EPILEPSY

REACTIONS (1)
  - Encephalitis autoimmune [Recovering/Resolving]
